FAERS Safety Report 19760188 (Version 1)
Quarter: 2021Q3

REPORT INFORMATION
  Report Type: Spontaneous
  Country: US (occurrence: US)
  Receive Date: 20210830
  Receipt Date: 20210830
  Transmission Date: 20211014
  Serious: No
  Sender: FDA-Public Use
  Company Number: US-TEVA-2021-US-1944039

PATIENT
  Age: 47 Year
  Sex: Female
  Weight: 83.46 kg

DRUGS (12)
  1. FENTANYL TRANSDERMAL SYSTEM [Concomitant]
     Active Substance: FENTANYL
     Route: 062
  2. ALPRAZOLAM. [Concomitant]
     Active Substance: ALPRAZOLAM
  3. LEVOTHYROXINE. [Concomitant]
     Active Substance: LEVOTHYROXINE
  4. AJOVY [Suspect]
     Active Substance: FREMANEZUMAB-VFRM
     Indication: MIGRAINE
     Dosage: AT A DOSE OF 1 INJECTION MONTHLY INTO THE LEG
     Route: 065
     Dates: start: 202104
  5. AJOVY [Suspect]
     Active Substance: FREMANEZUMAB-VFRM
     Dosage: AT 16:45
     Route: 065
     Dates: start: 20210812
  6. SOMA [Concomitant]
     Active Substance: CARISOPRODOL
  7. ZOLOFT [Concomitant]
     Active Substance: SERTRALINE HYDROCHLORIDE
  8. CYCLOBENZAPRINE. [Concomitant]
     Active Substance: CYCLOBENZAPRINE
  9. LYRICA [Concomitant]
     Active Substance: PREGABALIN
  10. INDOMETHACIN. [Concomitant]
     Active Substance: INDOMETHACIN
  11. DILAUDID [Concomitant]
     Active Substance: HYDROMORPHONE HYDROCHLORIDE
  12. AJOVY [Suspect]
     Active Substance: FREMANEZUMAB-VFRM
     Dosage: AT 08:00 IN THE OTHER LEG
     Route: 065
     Dates: start: 20210713

REACTIONS (5)
  - Injection site pain [Unknown]
  - Injection site swelling [Unknown]
  - Injection site erythema [Unknown]
  - Agitation [Unknown]
  - Injection site pruritus [Unknown]

NARRATIVE: CASE EVENT DATE: 2021
